FAERS Safety Report 8844651 (Version 3)
Quarter: 2014Q1

REPORT INFORMATION
  Report Type: Spontaneous
  Country: US (occurrence: None)
  Receive Date: 20120426
  Receipt Date: 20130107
  Transmission Date: 20141002
  Serious: No
  Sender: FDA-Public Use
  Company Number: PHEH2011US012109

PATIENT
  Age: 51 Year
  Sex: Male
  Weight: 76.6 kg

DRUGS (2)
  1. GILENYA [Suspect]
     Indication: MULTIPLE SCLEROSIS
     Route: 048
     Dates: start: 20111114
  2. METFORMIN (METFORMIN) [Suspect]

REACTIONS (5)
  - Amnesia [None]
  - Multiple sclerosis relapse [None]
  - Headache [None]
  - Muscular weakness [None]
  - Weight decreased [None]
